FAERS Safety Report 8621708-8 (Version None)
Quarter: 2012Q3

REPORT INFORMATION
  Report Type: 
  Country: None (occurrence: None)
  Receive Date: 20120821
  Receipt Date: 20120821
  Transmission Date: 20120928
  Serious: No
  Sender: FDA-Public Use
  Company Number: None

PATIENT
  Age: 78 Year
  Sex: Female

DRUGS (1)
  1. ROCURONIUM 50MG PER 5ML SAGENT PHARMACEUTICALS [Suspect]
     Dosage: 50 MG, ONCE, IV
     Route: 042
     Dates: start: 20120817, end: 20120817

REACTIONS (1)
  - DRUG INEFFECTIVE [None]
